FAERS Safety Report 19476146 (Version 1)
Quarter: 2021Q2

REPORT INFORMATION
  Report Type: Spontaneous
  Country: DE (occurrence: DE)
  Receive Date: 20210630
  Receipt Date: 20210630
  Transmission Date: 20210717
  Serious: Yes (Hospitalization)
  Sender: FDA-Public Use
  Company Number: DE-ACCORD-229974

PATIENT
  Age: 83 Year
  Sex: Male
  Weight: 94 kg

DRUGS (14)
  1. DOXAZOSIN [Concomitant]
     Active Substance: DOXAZOSIN MESYLATE
     Dosage: 4 MG, 1?0?1?0, TABLETS
     Route: 048
  2. ISDN AL [Concomitant]
     Active Substance: ISOSORBIDE DINITRATE
     Dosage: 40 RETARD, 40 MG, 1?0?0?0, INJECTION / INFUSION SOLUTION
  3. OMEPRAZOLE. [Concomitant]
     Active Substance: OMEPRAZOLE
     Dosage: 20 MG, 1?0?0?0, TABLETS
     Route: 048
  4. BISOPROLOL [Concomitant]
     Active Substance: BISOPROLOL
     Dosage: 2.5 MG, 1?0?0?0, TABLETS
     Route: 048
  5. CLOPIDOGREL [Suspect]
     Active Substance: CLOPIDOGREL BISULFATE
     Indication: PRODUCT USED FOR UNKNOWN INDICATION
     Dosage: 75 MG, 1?0?0?0, TABLETS
     Route: 048
  6. BERODUAL [Concomitant]
     Active Substance: FENOTEROL HYDROBROMIDE\IPRATROPIUM BROMIDE
     Dosage: IF NECESSARY, METERED DOSE AEROSOL
     Route: 055
  7. LANTUS [Concomitant]
     Active Substance: INSULIN GLARGINE
     Dosage: 1000U. 100U./ML, 8 IU, 0?0?1?0, INJECTION / INFUSION SOLUTION
     Route: 058
  8. TORASEMID [Concomitant]
     Active Substance: TORSEMIDE
     Dosage: 20 MG, 1?0.5?0?0, TABLETS
     Route: 048
  9. SIMVASTATIN. [Concomitant]
     Active Substance: SIMVASTATIN
     Dosage: 20 MG, 0?0?1?0, TABLETS
     Route: 048
  10. CANDESARTAN AL [Concomitant]
     Dosage: 16 MG, 1?0?1?0, TABLETS
     Route: 048
  11. ACTRAPID [Concomitant]
     Active Substance: INSULIN HUMAN
     Dosage: HM PENFILL 300I.U. 100 I.U./ML
     Route: 058
  12. XARELTO [Suspect]
     Active Substance: RIVAROXABAN
     Indication: PRODUCT USED FOR UNKNOWN INDICATION
     Dosage: 15 MG, 1?0?0?0, TABLETS
     Route: 048
  13. FOSTER [Concomitant]
     Active Substance: BECLOMETHASONE\FORMOTEROL
     Dosage: 1?0?1?0, INHALATION POWDER 100/6 MICROGRAMS
     Route: 055
  14. SPIRIVA RESPIMAT [Concomitant]
     Active Substance: TIOTROPIUM BROMIDE
     Dosage: 1.25 MICROGRAMS, 2?0?0?0, METERED DOSE AEROSOL
     Route: 055

REACTIONS (5)
  - Dyspnoea [Recovering/Resolving]
  - Somnolence [Recovering/Resolving]
  - Fatigue [Recovering/Resolving]
  - Cough [Recovering/Resolving]
  - Weight decreased [Recovering/Resolving]
